FAERS Safety Report 5312543-7 (Version None)
Quarter: 2007Q2

REPORT INFORMATION
  Report Type: 
  Country: None (occurrence: None)
  Receive Date: 20070430
  Receipt Date: 20070117
  Transmission Date: 20071010
  Serious: No
  Sender: FDA-Public Use
  Company Number: 2007UW00945

PATIENT
  Sex: Female
  Weight: 93.2 kg

DRUGS (5)
  1. NEXIUM [Suspect]
     Route: 048
     Dates: start: 20061201
  2. BYETTA [Suspect]
     Indication: DIABETES MELLITUS NON-INSULIN-DEPENDENT
     Dates: start: 20060501, end: 20060601
  3. BYETTA [Suspect]
     Dates: start: 20060601, end: 20061201
  4. BYETTA [Suspect]
     Dates: start: 20070101
  5. ACTONEL [Suspect]
     Dates: start: 20061201

REACTIONS (3)
  - DECREASED APPETITE [None]
  - NAUSEA [None]
  - VOMITING [None]
